FAERS Safety Report 24733744 (Version 4)
Quarter: 2025Q2

REPORT INFORMATION
  Report Type: Report from Study
  Country: CA (occurrence: CA)
  Receive Date: 20241213
  Receipt Date: 20250516
  Transmission Date: 20250717
  Serious: Yes (Other)
  Sender: HLS THERAPEUTICS
  Company Number: CA-HLS-202402994

PATIENT
  Age: 25 Year
  Sex: Female
  Weight: 64 kg

DRUGS (3)
  1. CLOZARIL [Suspect]
     Active Substance: CLOZAPINE
     Indication: Schizophrenia
     Route: 048
     Dates: start: 20240924
  2. CLOZARIL [Suspect]
     Active Substance: CLOZAPINE
     Indication: Schizophrenia
     Route: 048
     Dates: start: 20240927
  3. CLOZARIL [Suspect]
     Active Substance: CLOZAPINE
     Indication: Schizophrenia
     Route: 065

REACTIONS (8)
  - Dyskinesia [Recovered/Resolved with Sequelae]
  - Blood pressure decreased [Unknown]
  - Vision blurred [Recovered/Resolved with Sequelae]
  - Tremor [Recovered/Resolved with Sequelae]
  - Off label use [Unknown]
  - Drug ineffective for unapproved indication [Unknown]
  - Dyspnoea [Unknown]
  - Schizophrenia [Unknown]

NARRATIVE: CASE EVENT DATE: 20241001
